FAERS Safety Report 4593897-6 (Version None)
Quarter: 2005Q1

REPORT INFORMATION
  Report Type: 
  Country: None (occurrence: None)
  Receive Date: 20050301
  Receipt Date: 20050216
  Transmission Date: 20050727
  Serious: Yes (Hospitalization)
  Sender: FDA-Public Use
  Company Number: BG-MERCK-0502HUN00024

PATIENT
  Age: 69 Year
  Sex: Female

DRUGS (3)
  1. FOSAMAX [Suspect]
     Indication: OSTEOPOROSIS
     Route: 048
     Dates: start: 20040401, end: 20041201
  2. LISINOPRIL [Concomitant]
     Indication: HYPERTENSION
     Route: 065
  3. METOPROLOL [Concomitant]
     Indication: HYPERTENSION
     Route: 065

REACTIONS (2)
  - ABDOMINAL PAIN UPPER [None]
  - ANAEMIA [None]
